FAERS Safety Report 9713980 (Version 1)
Quarter: 2013Q4

REPORT INFORMATION
  Report Type: Spontaneous
  Country: US (occurrence: US)
  Receive Date: 20131126
  Receipt Date: 20131126
  Transmission Date: 20140711
  Serious: No
  Sender: FDA-Public Use
  Company Number: US-GILEAD-2008-0018367

PATIENT
  Sex: Female

DRUGS (8)
  1. LETAIRIS [Suspect]
     Route: 048
  2. LETAIRIS [Suspect]
     Route: 048
     Dates: start: 20070924
  3. LOVASTATIN [Concomitant]
  4. ASA [Concomitant]
  5. LASIX [Concomitant]
  6. CALCIUM [Concomitant]
  7. OMEGA 3 [Concomitant]
  8. B COMPLEX [Concomitant]

REACTIONS (1)
  - Upper respiratory tract congestion [Not Recovered/Not Resolved]
